FAERS Safety Report 4350420-9 (Version None)
Quarter: 2004Q2

REPORT INFORMATION
  Report Type: 
  Country: None (occurrence: None)
  Receive Date: 20040427
  Receipt Date: 20040416
  Transmission Date: 20050107
  Serious: Yes (Death)
  Sender: FDA-Public Use
  Company Number: 2004209631US

PATIENT
  Age: 32 Year
  Sex: Male

DRUGS (2)
  1. XANAX [Suspect]
  2. METHADONE (METHADONE) [Suspect]

REACTIONS (1)
  - DRUG TOXICITY [None]
